FAERS Safety Report 18694935 (Version 1)
Quarter: 2021Q1

REPORT INFORMATION
  Report Type: Spontaneous
  Country: US (occurrence: US)
  Receive Date: 20210101
  Receipt Date: 20210101
  Transmission Date: 20210419
  Serious: No
  Sender: FDA-Public Use
  Company Number: None

PATIENT
  Age: 39 Year
  Sex: Female
  Weight: 117 kg

DRUGS (2)
  1. IBUPROFEN. [Concomitant]
     Active Substance: IBUPROFEN
  2. PAROEX [Suspect]
     Active Substance: CHLORHEXIDINE GLUCONATE
     Indication: ANTIBIOTIC PROPHYLAXIS
     Route: 048
     Dates: start: 20200923, end: 20201104

REACTIONS (4)
  - Impaired healing [None]
  - Implant site discharge [None]
  - Oral bacterial infection [None]
  - Purulent discharge [None]

NARRATIVE: CASE EVENT DATE: 20200923
